FAERS Safety Report 7068666-8 (Version None)
Quarter: 2010Q4

REPORT INFORMATION
  Report Type: 
  Country: None (occurrence: None)
  Receive Date: 20101027
  Receipt Date: 20101027
  Transmission Date: 20110411
  Serious: Yes (Hospitalization)
  Sender: FDA-Public Use
  Company Number: None

PATIENT
  Weight: 12.7007 kg

DRUGS (1)
  1. HYLANDS TEETHING TABS [Suspect]
     Indication: TEETHING
     Dosage: 2 TABS BID PO
     Route: 048
     Dates: start: 20101001, end: 20101022

REACTIONS (5)
  - CONVULSION [None]
  - HEADACHE [None]
  - LOSS OF CONSCIOUSNESS [None]
  - UNEVALUABLE EVENT [None]
  - VOMITING [None]
